FAERS Safety Report 23337425 (Version 1)
Quarter: 2023Q4

REPORT INFORMATION
  Report Type: Spontaneous
  Country: US (occurrence: US)
  Receive Date: 20231226
  Receipt Date: 20231226
  Transmission Date: 20240109
  Serious: Yes (Other)
  Sender: FDA-Public Use
  Company Number: US-ABBVIE-5551891

PATIENT
  Age: 70 Year
  Sex: Female
  Weight: 44 kg

DRUGS (14)
  1. LEVOTHYROXINE [Suspect]
     Active Substance: LEVOTHYROXINE
     Indication: Hypothyroidism
     Dosage: UNKNOWN
     Route: 048
     Dates: start: 1993, end: 202209
  2. TRELEGY ELLIPTA [Concomitant]
     Active Substance: FLUTICASONE FUROATE\UMECLIDINIUM BROMIDE\VILANTEROL TRIFENATATE
     Indication: Chronic obstructive pulmonary disease
     Dosage: 200/62.5/25 MCG?FREQUENCY TEXT: IN THE MORNING?START DATE TEXT: MANY YEARS
     Dates: end: 20231217
  3. SEROQUEL [Concomitant]
     Active Substance: QUETIAPINE FUMARATE
     Indication: Bipolar disorder
     Dosage: FORM STRENGTH 50 MILLIGRAM?FREQUENCY TEXT: EVERY NIGHT?STOP DATE TEXT: A WEEK AND A HALF AGO
     Route: 048
  4. SEROQUEL [Concomitant]
     Active Substance: QUETIAPINE FUMARATE
     Indication: Bipolar disorder
     Dosage: FORM STRENGTH: 25 MILLIGRAM?FREQUENCY TEXT: EVERY NIGHT
     Route: 048
     Dates: start: 202209
  5. SEROQUEL [Concomitant]
     Active Substance: QUETIAPINE FUMARATE
     Indication: Bipolar disorder
     Dosage: 400 MILLIGRAM?FIRST ADMIN DATE 1990?FORM STRENGTH: 400 MILLIGRAM
     Route: 048
     Dates: end: 202209
  6. SEROQUEL [Concomitant]
     Active Substance: QUETIAPINE FUMARATE
     Indication: Bipolar disorder
     Dosage: FORM STRENGTH 100 MILLIGRAM?FREQUENCY TEXT: EVERY NIGHT ?START DATE TEXT: A WEEK AND A HALF AGO
     Route: 048
  7. PREDNISONE [Concomitant]
     Active Substance: PREDNISONE
     Indication: Arthritis
  8. BUSPIRONE [Concomitant]
     Active Substance: BUSPIRONE HYDROCHLORIDE
     Indication: Smoking cessation therapy
     Dosage: FORM STRENGTH: 300 MILLIGRAM
  9. TRAZODONE [Concomitant]
     Active Substance: TRAZODONE HYDROCHLORIDE
     Indication: Essential tremor
     Dosage: TIME INTERVAL: 0.33333333 DAYS: 1 TABLET
  10. FOLIC ACID [Concomitant]
     Active Substance: FOLIC ACID
     Indication: Rheumatoid arthritis
  11. ESCITALOPRAM [Concomitant]
     Active Substance: ESCITALOPRAM OXALATE
     Indication: Bipolar disorder
  12. HYDROXYCHLOROQUINE [Concomitant]
     Active Substance: HYDROXYCHLOROQUINE
     Indication: Rheumatoid arthritis
  13. DIAZEPAM [Concomitant]
     Active Substance: DIAZEPAM
     Indication: Bipolar disorder
  14. BUSPAR [Concomitant]
     Active Substance: BUSPIRONE HYDROCHLORIDE
     Indication: Smoking cessation therapy
     Dosage: TIME INTERVAL: 0.33333333 DAYS: 3 TABLET?FORM STRENGTH: 5 MILLIGRAM
     Route: 048

REACTIONS (3)
  - Blindness [Recovered/Resolved]
  - Syncope [Recovered/Resolved]
  - Hypersensitivity [Recovered/Resolved]

NARRATIVE: CASE EVENT DATE: 20220901
